FAERS Safety Report 23094884 (Version 1)
Quarter: 2023Q4

REPORT INFORMATION
  Report Type: Spontaneous
  Country: US (occurrence: None)
  Receive Date: 20231018
  Receipt Date: 20231018
  Transmission Date: 20240109
  Serious: Yes (Hospitalization)
  Sender: FDA-Public Use
  Company Number: None

PATIENT
  Sex: Male

DRUGS (12)
  1. LENALIDOMIDE [Suspect]
     Active Substance: LENALIDOMIDE
     Indication: Plasma cell myeloma
     Dosage: OTHER FREQUENCY : EVERY 48 HOURS;?
     Route: 048
  2. LENALIDOMIDE [Suspect]
     Active Substance: LENALIDOMIDE
     Dosage: OTHER FREQUENCY : EVERY 48 HOURS;?
     Route: 048
  3. ADVAIR DISKU AER [Concomitant]
  4. DEXAMETHASON [Concomitant]
  5. FLUDROCORT [Concomitant]
  6. LEVOTHYROXIN [Concomitant]
  7. LOVENOX [Concomitant]
     Active Substance: ENOXAPARIN SODIUM
  8. MIDODRINE [Concomitant]
  9. ONDANSETRON [Concomitant]
  10. REVLIMID [Concomitant]
     Active Substance: LENALIDOMIDE
  11. SYMBICORT AER [Concomitant]
  12. TRAMADOL HCL [Concomitant]
     Active Substance: TRAMADOL HYDROCHLORIDE

REACTIONS (2)
  - Back pain [None]
  - Therapy interrupted [None]
